FAERS Safety Report 20058142 (Version 1)
Quarter: 2021Q4

REPORT INFORMATION
  Report Type: Spontaneous
  Country: US (occurrence: None)
  Receive Date: 20211110
  Receipt Date: 20211110
  Transmission Date: 20220303
  Serious: Yes (Death)
  Sender: FDA-Public Use
  Company Number: None

PATIENT
  Age: 24 Year
  Sex: Male

DRUGS (1)
  1. BETHKIS [Suspect]
     Active Substance: TOBRAMYCIN
     Indication: Pseudomonas infection
     Dosage: FREQUENCY : TOTAL;?
     Route: 055
     Dates: start: 2016, end: 20211107

REACTIONS (1)
  - Death [None]

NARRATIVE: CASE EVENT DATE: 20211107
